FAERS Safety Report 11078571 (Version 1)
Quarter: 2015Q2

REPORT INFORMATION
  Report Type: Spontaneous
  Country: IN (occurrence: IN)
  Receive Date: 20150430
  Receipt Date: 20150430
  Transmission Date: 20150821
  Serious: Yes (Other)
  Sender: FDA-Public Use
  Company Number: IN-PFIZER INC-2015140555

PATIENT
  Age: 26 Year
  Sex: Male

DRUGS (3)
  1. GABAPENTIN. [Suspect]
     Active Substance: GABAPENTIN
     Indication: WITHDRAWAL SYNDROME
     Dosage: 400 MG, DAILY
  2. GABAPENTIN. [Suspect]
     Active Substance: GABAPENTIN
     Dosage: TITRATED UP TO 2 G, DAILY
  3. GABAPENTIN. [Suspect]
     Active Substance: GABAPENTIN
     Dosage: INCREASED DOSE TO 10-12 G/DAY

REACTIONS (7)
  - Irritability [Recovering/Resolving]
  - Mental disorder [Recovering/Resolving]
  - Drug abuse [Recovering/Resolving]
  - Agitation [Recovering/Resolving]
  - Drug dependence [Recovering/Resolving]
  - Drug withdrawal syndrome [Recovering/Resolving]
  - Insomnia [Recovering/Resolving]
